FAERS Safety Report 4463430-8 (Version None)
Quarter: 2004Q3

REPORT INFORMATION
  Report Type: 
  Country: None (occurrence: None)
  Receive Date: 20040928
  Receipt Date: 20040921
  Transmission Date: 20050211
  Serious: Yes (Other)
  Sender: FDA-Public Use
  Company Number: CIP04000158

PATIENT
  Age: 60 Year
  Sex: Female
  Weight: 54.4 kg

DRUGS (5)
  1. ACTONEL [Suspect]
     Indication: OSTEOPENIA
     Dosage: 35 MG ONCE WEEKLY, ORAL
     Route: 048
  2. ACTONEL [Suspect]
     Indication: OSTEOPENIA
     Dosage: 30 MG ONCE WEEKLY, ORAL
     Route: 048
     Dates: start: 19990101
  3. SYNTHROID [Concomitant]
  4. VITAMIN D [Concomitant]
  5. MULTIVITAMIN [Concomitant]

REACTIONS (9)
  - AMYOTROPHIC LATERAL SCLEROSIS [None]
  - ASTHENIA [None]
  - HEPATIC ENZYME INCREASED [None]
  - METABOLIC DISORDER [None]
  - MUSCLE CRAMP [None]
  - NERVE INJURY [None]
  - NEURODEGENERATIVE DISORDER [None]
  - PERONEAL NERVE PALSY [None]
  - URTICARIA [None]
